FAERS Safety Report 4838034-5 (Version None)
Quarter: 2005Q4

REPORT INFORMATION
  Report Type: 
  Country: None (occurrence: None)
  Receive Date: 20051123
  Receipt Date: 20051115
  Transmission Date: 20060501
  Serious: Yes (Hospitalization)
  Sender: FDA-Public Use
  Company Number: 2005-04500

PATIENT
  Age: 77 Year
  Sex: Female

DRUGS (2)
  1. ATENOLOL [Suspect]
     Dosage: 25 MG, DAILY, ORAL
     Route: 048
  2. AMIODARONE HCL [Suspect]
     Indication: ATRIAL FIBRILLATION

REACTIONS (4)
  - BLOOD MAGNESIUM DECREASED [None]
  - DRUG INTERACTION [None]
  - HYPOKALAEMIA [None]
  - TORSADE DE POINTES [None]
